FAERS Safety Report 22233281 (Version 1)
Quarter: 2023Q2

REPORT INFORMATION
  Report Type: Spontaneous
  Country: IT (occurrence: IT)
  Receive Date: 20230420
  Receipt Date: 20230420
  Transmission Date: 20230722
  Serious: Yes (Other)
  Sender: FDA-Public Use
  Company Number: IT-DENTSPLY-2023SCDP000123

PATIENT
  Age: 42 Year
  Sex: Female

DRUGS (3)
  1. LIDOCAINE [Suspect]
     Active Substance: LIDOCAINE
     Indication: Back pain
     Dosage: UNK
     Route: 037
  2. THIOCOLCHICOSIDE [Suspect]
     Active Substance: THIOCOLCHICOSIDE
     Indication: Back pain
     Dosage: UNK
     Route: 037
  3. ACETYLCARNITINE [Suspect]
     Active Substance: ACETYLCARNITINE
     Indication: Back pain
     Dosage: UNK
     Route: 037

REACTIONS (8)
  - Coma [Recovered/Resolved]
  - Seizure [Recovered/Resolved]
  - Retrograde amnesia [None]
  - Neurological decompensation [Recovered/Resolved]
  - Mydriasis [Recovered/Resolved]
  - Trismus [Recovered/Resolved]
  - Acidosis [Recovered/Resolved]
  - Accidental exposure to product [Unknown]
